FAERS Safety Report 5074924-9 (Version None)
Quarter: 2006Q3

REPORT INFORMATION
  Report Type: 
  Country: None (occurrence: None)
  Receive Date: 20060804
  Receipt Date: 20060725
  Transmission Date: 20061208
  Serious: Yes (Other)
  Sender: FDA-Public Use
  Company Number: 2006092270

PATIENT
  Sex: Female
  Weight: 54.4316 kg

DRUGS (3)
  1. LYRICA [Suspect]
     Indication: NEUROPATHY
     Dates: start: 20060101, end: 20060101
  2. NEURONTIN [Suspect]
     Indication: NEUROPATHY
     Dates: end: 20060101
  3. ATIVAN [Concomitant]

REACTIONS (6)
  - BALANCE DISORDER [None]
  - DISTURBANCE IN ATTENTION [None]
  - FEELING ABNORMAL [None]
  - HEART RATE INCREASED [None]
  - HYPERTENSION [None]
  - VERTIGO [None]
